FAERS Safety Report 16231659 (Version 1)
Quarter: 2019Q2

REPORT INFORMATION
  Report Type: Spontaneous
  Country: DK (occurrence: DK)
  Receive Date: 20190424
  Receipt Date: 20190424
  Transmission Date: 20190711
  Serious: Yes (Hospitalization)
  Sender: FDA-Public Use
  Company Number: DK-009507513-1904DNK009588

PATIENT
  Age: 80 Year
  Sex: Female

DRUGS (5)
  1. ALENDRONATE SODIUM. [Suspect]
     Active Substance: ALENDRONATE SODIUM
     Indication: OSTEOPOROSIS
     Dosage: 70 MILLIGRAM, QW
     Route: 048
     Dates: start: 2008
  2. ACETAMINOPHEN. [Concomitant]
     Active Substance: ACETAMINOPHEN
     Indication: PAIN
     Dosage: 1000 MILLIGRAM; STRENGTH: 500 MG DOSAGE: TWO (2) TABLETS AS NECESSARY, MAXIMUM FOUR (4) TIMES DAILY
     Route: 048
     Dates: start: 20160314
  3. SIMVASTATIN. [Concomitant]
     Active Substance: SIMVASTATIN
     Indication: HYPERCHOLESTEROLAEMIA
     Dosage: 40 MILLIGRAM, QD
     Route: 048
  4. CLOPIDOGREL [Concomitant]
     Active Substance: CLOPIDOGREL BISULFATE
     Indication: THROMBOSIS PROPHYLAXIS
     Dosage: 75 MILLIGRAM, QD
     Route: 048
  5. BUDENOFALK [Concomitant]
     Active Substance: BUDESONIDE
     Indication: INFLAMMATION
     Dosage: STRENGTH: 3 MG DOSAGE: THREE (3) CAPSULES ONCE (1) DAILY FOR EIGHT (8) WEEKS
     Route: 048
     Dates: start: 20180919, end: 20190218

REACTIONS (4)
  - Exposed bone in jaw [Unknown]
  - Impaired healing [Unknown]
  - Osteonecrosis of jaw [Not Recovered/Not Resolved]
  - Sequestrectomy [Recovered/Resolved]

NARRATIVE: CASE EVENT DATE: 2018
